FAERS Safety Report 20107710 (Version 2)
Quarter: 2024Q4

REPORT INFORMATION
  Report Type: Spontaneous
  Country: US (occurrence: US)
  Receive Date: 20211124
  Receipt Date: 20241104
  Transmission Date: 20250114
  Serious: No
  Sender: PERRIGO
  Company Number: US-PERRIGO-20US017581

PATIENT
  Sex: Female

DRUGS (2)
  1. POLYETHYLENE GLYCOL 3350 [Suspect]
     Active Substance: POLYETHYLENE GLYCOL 3350
     Indication: Constipation
     Dosage: UNKNOWN, UNKNOWN
     Route: 048
     Dates: start: 20201204, end: 20201204
  2. POLYETHYLENE GLYCOL 3350 [Suspect]
     Active Substance: POLYETHYLENE GLYCOL 3350
     Dosage: UNKNOWN, SINGLE
     Route: 048
     Dates: start: 20240124, end: 20240124

REACTIONS (2)
  - Drug effect less than expected [Unknown]
  - Expired product administered [Unknown]

NARRATIVE: CASE EVENT DATE: 20201204
